FAERS Safety Report 6229864-6 (Version None)
Quarter: 2009Q2

REPORT INFORMATION
  Report Type: 
  Country: None (occurrence: None)
  Receive Date: 20090615
  Receipt Date: 20090603
  Transmission Date: 20091009
  Serious: Yes (Hospitalization)
  Sender: FDA-Public Use
  Company Number: FR-AMGEN-STX349983

PATIENT
  Age: 58 Year
  Sex: Male

DRUGS (2)
  1. MIMPARA [Suspect]
     Indication: HYPERPARATHYROIDISM SECONDARY
     Route: 048
     Dates: start: 20080901, end: 20081124
  2. CORTICOSTEROID NOS [Concomitant]

REACTIONS (4)
  - EOSINOPHILIA [None]
  - FACE OEDEMA [None]
  - PRURITUS [None]
  - RASH MACULO-PAPULAR [None]
